FAERS Safety Report 23039409 (Version 1)
Quarter: 2023Q4

REPORT INFORMATION
  Report Type: Report from Study
  Country: CN (occurrence: CN)
  Receive Date: 20231006
  Receipt Date: 20231006
  Transmission Date: 20240110
  Serious: Yes (Death, Hospitalization, Other)
  Sender: FDA-Public Use
  Company Number: CN-JNJFOC-20230968181

PATIENT
  Age: 77 Year
  Sex: Male
  Weight: 61.6 kg

DRUGS (33)
  1. BORTEZOMIB [Suspect]
     Active Substance: BORTEZOMIB
     Indication: Primary amyloidosis
     Dosage: 2.3 MILLIGRAM
     Route: 058
     Dates: start: 20230724, end: 20230724
  2. BORTEZOMIB [Suspect]
     Active Substance: BORTEZOMIB
     Dosage: 2.3 MILLIGRAM
     Route: 058
     Dates: start: 20230731, end: 20230731
  3. BORTEZOMIB [Suspect]
     Active Substance: BORTEZOMIB
     Dosage: 2.3 MILLIGRAM
     Route: 058
     Dates: start: 20230807, end: 20230807
  4. BORTEZOMIB [Suspect]
     Active Substance: BORTEZOMIB
     Dosage: 2.3 MILLIGRAM
     Route: 058
     Dates: start: 20230814, end: 20230814
  5. BORTEZOMIB [Suspect]
     Active Substance: BORTEZOMIB
     Dosage: 1.7 MILLIGRAM
     Route: 058
     Dates: start: 20230821, end: 20230821
  6. DEXAMETHASONE [Suspect]
     Active Substance: DEXAMETHASONE
     Indication: Primary amyloidosis
     Dosage: 40 MILLIGRAM
     Route: 042
     Dates: start: 20230724, end: 20230724
  7. DEXAMETHASONE [Suspect]
     Active Substance: DEXAMETHASONE
     Dosage: 40 MILLIGRAM
     Route: 042
     Dates: start: 20230731, end: 20230731
  8. DEXAMETHASONE [Suspect]
     Active Substance: DEXAMETHASONE
     Dosage: 40 MILLIGRAM
     Route: 042
     Dates: start: 20230807, end: 20230807
  9. DEXAMETHASONE [Suspect]
     Active Substance: DEXAMETHASONE
     Dosage: 40 MILLIGRAM
     Route: 042
     Dates: start: 20230814, end: 20230814
  10. DEXAMETHASONE [Suspect]
     Active Substance: DEXAMETHASONE
     Dosage: 40 MILLIGRAM
     Route: 042
     Dates: start: 20230821, end: 20230821
  11. DARZALEX [Suspect]
     Active Substance: DARATUMUMAB
     Indication: Primary amyloidosis
     Dosage: 1000 MILLIGRAM
     Route: 042
     Dates: start: 20230724, end: 20230724
  12. DARZALEX [Suspect]
     Active Substance: DARATUMUMAB
     Dosage: 1000 MILLIGRAM
     Route: 042
     Dates: start: 20230807, end: 20230807
  13. DARZALEX [Suspect]
     Active Substance: DARATUMUMAB
     Dosage: 1000 MILLIGRAM
     Route: 042
     Dates: start: 20230821, end: 20230821
  14. CYCLOPHOSPHAMIDE [Suspect]
     Active Substance: CYCLOPHOSPHAMIDE
     Indication: Primary amyloidosis
     Dosage: 0.4 GRAM
     Route: 042
     Dates: start: 20230724, end: 20230724
  15. CYCLOPHOSPHAMIDE [Suspect]
     Active Substance: CYCLOPHOSPHAMIDE
     Dosage: 0.4 GRAM
     Route: 042
     Dates: start: 20230731, end: 20230731
  16. CYCLOPHOSPHAMIDE [Suspect]
     Active Substance: CYCLOPHOSPHAMIDE
     Dosage: 0.4 GRAM
     Route: 042
     Dates: start: 20230807, end: 20230807
  17. CYCLOPHOSPHAMIDE [Suspect]
     Active Substance: CYCLOPHOSPHAMIDE
     Dosage: 0.4 GRAM
     Route: 042
     Dates: start: 20230814, end: 20230814
  18. CYCLOPHOSPHAMIDE [Suspect]
     Active Substance: CYCLOPHOSPHAMIDE
     Dosage: 0.4 GRAM
     Route: 042
     Dates: start: 20230821, end: 20230821
  19. SODIUM BICARBONATE [Concomitant]
     Active Substance: SODIUM BICARBONATE
     Dosage: UNK
     Route: 065
     Dates: start: 20230417, end: 20230827
  20. REBAMIPIDE [Concomitant]
     Active Substance: REBAMIPIDE
     Dosage: UNK
     Route: 065
  21. TORSEMIDE [Concomitant]
     Active Substance: TORSEMIDE
     Dosage: UNK
     Route: 065
  22. SPIRONOLACTONE [Concomitant]
     Active Substance: SPIRONOLACTONE
     Dosage: UNK
     Route: 065
  23. MIDODRINE HYDROCHLORIDE [Concomitant]
     Active Substance: MIDODRINE HYDROCHLORIDE
     Dosage: UNK
     Route: 065
     Dates: start: 20230612
  24. TOLVAPTAN [Concomitant]
     Active Substance: TOLVAPTAN
     Dosage: UNK
     Route: 065
     Dates: start: 20230710, end: 20230822
  25. OMEPRAZOLE SODIUM [Concomitant]
     Active Substance: OMEPRAZOLE SODIUM
     Dosage: UNK
     Route: 065
     Dates: start: 20230724, end: 20230821
  26. ONDANSETRON [Concomitant]
     Active Substance: ONDANSETRON
     Dosage: UNK
     Route: 065
     Dates: start: 20230724, end: 20230821
  27. LOPERAMIDE HYDROCHLORIDE [Concomitant]
     Active Substance: LOPERAMIDE HYDROCHLORIDE
     Dosage: UNK
     Route: 065
     Dates: start: 20230718, end: 20230824
  28. MONTMORILLONITE [Concomitant]
     Active Substance: MONTMORILLONITE
     Dosage: UNK
     Route: 065
     Dates: start: 20230801, end: 20230824
  29. Enteral nutritional suspension (TPF-D) [Concomitant]
     Dosage: UNK
     Dates: start: 20230808, end: 20230808
  30. FUROSEMIDE [Concomitant]
     Active Substance: FUROSEMIDE
     Dosage: UNK
     Route: 065
     Dates: start: 20230818, end: 20230821
  31. CLOSTRIDIUM BUTYRICUM SPORES STRAIN M-55 [Concomitant]
     Active Substance: CLOSTRIDIUM BUTYRICUM SPORES STRAIN M-55
     Dosage: UNK
     Route: 065
     Dates: start: 20230822
  32. SODIUM CHLORIDE [Concomitant]
     Active Substance: SODIUM CHLORIDE
     Dosage: UNK
     Route: 065
     Dates: start: 20230822, end: 20230822
  33. ALBUMIN HUMAN [Concomitant]
     Active Substance: ALBUMIN HUMAN
     Dosage: UNK
     Route: 065
     Dates: start: 20230818, end: 20230819

REACTIONS (9)
  - Septic shock [Fatal]
  - Diarrhoea [Not Recovered/Not Resolved]
  - Atrial fibrillation [Not Recovered/Not Resolved]
  - Hypokalaemia [Unknown]
  - Hypotension [Unknown]
  - Pleural effusion [Not Recovered/Not Resolved]
  - Respiratory failure [Unknown]
  - Myelosuppression [Unknown]
  - Off label use [Unknown]

NARRATIVE: CASE EVENT DATE: 20230822
